FAERS Safety Report 9905947 (Version 1)
Quarter: 2013Q2

REPORT INFORMATION
  Report Type: Spontaneous
  Country: US (occurrence: None)
  Receive Date: 20130305
  Receipt Date: 20130305
  Transmission Date: 20140414
  Serious: Yes (Hospitalization)
  Sender: FDA-Public Use
  Company Number: 163-21880-12041781

PATIENT
  Age: 78 Year
  Sex: Male

DRUGS (1)
  1. REVLIMID (LENALIDOMIDE) (CAPSULES) [Suspect]
     Indication: NEOPLASM
     Route: 048
     Dates: start: 201202

REACTIONS (5)
  - Cardiac failure congestive [None]
  - Dyspnoea [None]
  - Oedema peripheral [None]
  - Pain [None]
  - Malaise [None]
